FAERS Safety Report 5958233-9 (Version None)
Quarter: 2008Q4

REPORT INFORMATION
  Report Type: 
  Country: None (occurrence: None)
  Receive Date: 20081117
  Receipt Date: 20081104
  Transmission Date: 20090506
  Serious: No
  Sender: FDA-Public Use
  Company Number: 2008-04000

PATIENT
  Age: 70 Year
  Sex: Male
  Weight: 105.7 kg

DRUGS (2)
  1. VELCADE [Suspect]
     Indication: MULTIPLE MYELOMA
     Dosage: 1.3 MG/M2, INTRAVENOUS
     Route: 042
     Dates: start: 20070801, end: 20071201
  2. DECADRON [Concomitant]

REACTIONS (6)
  - ARTHRALGIA [None]
  - ARTHRITIS [None]
  - DEHYDRATION [None]
  - MYALGIA [None]
  - NEPHROPATHY TOXIC [None]
  - NEUROTOXICITY [None]
